FAERS Safety Report 24214102 (Version 1)
Quarter: 2024Q3

REPORT INFORMATION
  Report Type: Spontaneous
  Country: US (occurrence: None)
  Receive Date: 20240814
  Receipt Date: 20240814
  Transmission Date: 20241017
  Serious: Yes (Other)
  Sender: Public
  Company Number: None

PATIENT
  Age: 24 Year
  Sex: Female

DRUGS (3)
  1. PNV-SELECT [Suspect]
     Active Substance: .ALPHA.-TOCOPHEROL ACETATE, DL-\ASCORBIC ACID\BIOTIN\CALCIUM CARBONATE\CALCIUM PANTOTHENATE\CHOLECAL
     Indication: Pregnancy
     Dosage: FREQUENCY : DAILY;?
     Route: 048
     Dates: start: 20240814, end: 20240814
  2. SERTRALINE [Concomitant]
     Active Substance: SERTRALINE HYDROCHLORIDE
     Dates: start: 20231023
  3. BUPROPION [Concomitant]
     Active Substance: BUPROPION
     Dates: start: 20231023

REACTIONS (4)
  - Tremor [None]
  - Euphoric mood [None]
  - Sensation of foreign body [None]
  - Heart rate increased [None]

NARRATIVE: CASE EVENT DATE: 20240814
